FAERS Safety Report 4014690 (Version 3)
Quarter: 2014Q2

REPORT INFORMATION
  Report Type: Spontaneous
  Country: FR (occurrence: None)
  Receive Date: 20031001
  Receipt Date: 20140529
  Transmission Date: 20141212
  Serious: Yes (Hospitalization, Other)
  Sender: FDA-Public Use
  Company Number: 2003EU006599

PATIENT
  Age: 33 Year
  Sex: Male

DRUGS (6)
  1. PROGRAF [Suspect]
     Indication: TRANSPLANT
     Dosage: 0.2 MG/KG UNKNOWN/D, UNKNOWN
  2. PROGRAF [Suspect]
     Indication: IMMUNOSUPPRESSANT DRUG THERAPY
     Dosage: 0.2 MG/KG UNKNOWN/D, UNKNOWN
  3. THYMOGLOBULIN [Concomitant]
  4. PREDNISONE [Concomitant]
  5. CELLCEPT [Concomitant]
  6. SIMULECT [Concomitant]

REACTIONS (11)
  - Hyperglycaemia [None]
  - Serum sickness [None]
  - Vomiting [None]
  - Diarrhoea [None]
  - Headache [None]
  - Hallucination, visual [None]
  - Confusional state [None]
  - Transplant rejection [None]
  - Post procedural complication [None]
  - Drug ineffective [None]
  - Off label use [None]
